FAERS Safety Report 9400118 (Version 4)
Quarter: 2013Q3

REPORT INFORMATION
  Report Type: Spontaneous
  Country: PL (occurrence: PL)
  Receive Date: 20130715
  Receipt Date: 20130828
  Transmission Date: 20140515
  Serious: Yes (Other)
  Sender: FDA-Public Use
  Company Number: PL-NOVOPROD-382671

PATIENT
  Age: 56 Year
  Sex: Female
  Weight: 67 kg

DRUGS (2)
  1. NOVOMIX 30 PENFILL [Suspect]
     Indication: TYPE 2 DIABETES MELLITUS
     Dosage: 10 IU IN MORNING AND 10 IU IN EVENING)
     Route: 065
     Dates: start: 20130501, end: 20130515
  2. METFORMINUM [Concomitant]
     Indication: TYPE 2 DIABETES MELLITUS
     Dosage: UNK
     Dates: start: 20121018

REACTIONS (5)
  - Dyspnoea [Recovered/Resolved]
  - Weight increased [Recovered/Resolved]
  - Eye oedema [Recovered/Resolved]
  - Oedema peripheral [Recovered/Resolved]
  - Malaise [Unknown]
